FAERS Safety Report 13272328 (Version 6)
Quarter: 2017Q4

REPORT INFORMATION
  Report Type: Report from Study
  Country: US (occurrence: US)
  Receive Date: 20170227
  Receipt Date: 20171011
  Transmission Date: 20180320
  Serious: Yes (Death, Hospitalization)
  Sender: FDA-Public Use
  Company Number: US-BAYER-2017-029692

PATIENT
  Age: 63 Year
  Sex: Male

DRUGS (2)
  1. XOFIGO [Suspect]
     Active Substance: RADIUM RA-223 DICHLORIDE
     Indication: HORMONE-REFRACTORY PROSTATE CANCER
     Dosage: 117.90 ?CI, ONCE EVERY 28 DAYS
     Route: 042
     Dates: start: 20170116, end: 20170116
  2. XOFIGO [Suspect]
     Active Substance: RADIUM RA-223 DICHLORIDE
     Indication: METASTASES TO BONE
     Dosage: 108.40 ?CI, Q4WK
     Route: 042
     Dates: start: 20170306, end: 20170306

REACTIONS (5)
  - Swelling [None]
  - Hormone-refractory prostate cancer [Fatal]
  - Pneumonia [None]
  - Decreased immune responsiveness [Fatal]
  - Hospitalisation [None]

NARRATIVE: CASE EVENT DATE: 20170205
